FAERS Safety Report 4888073-3 (Version None)
Quarter: 2006Q1

REPORT INFORMATION
  Report Type: 
  Country: None (occurrence: None)
  Receive Date: 20060118
  Receipt Date: 20060111
  Transmission Date: 20060701
  Serious: Yes (Hospitalization)
  Sender: FDA-Public Use
  Company Number: TAP2006Q00085

PATIENT
  Age: 74 Year
  Sex: Male

DRUGS (6)
  1. LUPRON DEPOT-4 [Suspect]
     Indication: PROSTATE CANCER
     Dosage: 30 MG, 1 IN 4 M, INTRAMUSCULAR
     Route: 030
     Dates: start: 20050923
  2. ATIVAN [Concomitant]
  3. PLAVIX [Concomitant]
  4. CALCIUM AND VITAMIN D (CALCIUM WITH VITAMIN D) [Concomitant]
  5. FLOMAX (MORNIFLUMATE) [Concomitant]
  6. PRAVACHOL [Concomitant]

REACTIONS (5)
  - CEREBRAL HAEMATOMA [None]
  - FALL [None]
  - HEAD INJURY [None]
  - HYPOTENSION [None]
  - LOSS OF CONSCIOUSNESS [None]
